FAERS Safety Report 21265616 (Version 1)
Quarter: 2022Q3

REPORT INFORMATION
  Report Type: Spontaneous
  Country: LU (occurrence: LU)
  Receive Date: 20220829
  Receipt Date: 20220829
  Transmission Date: 20221027
  Serious: Yes (Other)
  Sender: FDA-Public Use
  Company Number: LU-PFIZER INC-PV202200044405

PATIENT
  Age: 4 Decade
  Sex: Female

DRUGS (4)
  1. METHYLPREDNISOLONE [Suspect]
     Active Substance: METHYLPREDNISOLONE
     Indication: Immune thrombocytopenia
     Dosage: 64 MG, 1X/DAY (FROM WEEK 27 TO DELIVERY)
     Route: 064
  2. METHYLPREDNISOLONE [Suspect]
     Active Substance: METHYLPREDNISOLONE
     Dosage: 96 MG, 1X/DAY (FROM WEEK 25 TO 27)
     Route: 064
  3. METHYLPREDNISOLONE [Suspect]
     Active Substance: METHYLPREDNISOLONE
     Dosage: 64 MG, 1X/DAY (FROM WEEK 27 TO DELIVERY)
     Route: 064
  4. HUMAN IMMUNOGLOBULIN G [Concomitant]
     Active Substance: HUMAN IMMUNOGLOBULIN G
     Indication: Immune thrombocytopenia
     Dosage: UNK

REACTIONS (3)
  - Gestational diabetes [Unknown]
  - Premature labour [Unknown]
  - Maternal exposure during pregnancy [Unknown]
